FAERS Safety Report 24004149 (Version 1)
Quarter: 2024Q2

REPORT INFORMATION
  Report Type: Report from Study
  Country: DE (occurrence: DE)
  Receive Date: 20240624
  Receipt Date: 20240624
  Transmission Date: 20240715
  Serious: Yes (Death)
  Sender: FDA-Public Use
  Company Number: DE-ROCHE-10000001489

PATIENT

DRUGS (8)
  1. RITUXIMAB [Suspect]
     Active Substance: RITUXIMAB
     Indication: Central nervous system lymphoma
     Dosage: DAY -5 AND 0 FOR MATRIX; 2 CYCLES RITUXIMAB 375 MG/M2 DAY 0 AND 10 FOR FREIBURG; DAY 0 AND 5 FOR MAR
     Route: 042
  2. METHOTREXATE [Suspect]
     Active Substance: METHOTREXATE
     Indication: Central nervous system lymphoma
     Dosage: DAY 1 AND 11, FOLLOWED BY 1-2 CYCLES; METHOTREXATE 3500 MG/M2 D1 IN FREIBURG
     Route: 065
  3. METHOTREXATE [Suspect]
     Active Substance: METHOTREXATE
     Dosage: DAY 1 IN R-MTX/IFOSFAMIDE
     Route: 065
  4. METHOTREXATE [Suspect]
     Active Substance: METHOTREXATE
     Dosage: D1 IN MATRIX; D1 IN MARTA
     Route: 065
  5. CYTARABINE [Suspect]
     Active Substance: CYTARABINE
     Indication: Central nervous system lymphoma
     Dosage: 2X 2000 MG/M2 DAY 2 AND 3 IN MATRIX; CYTARABINE 2X 3000 MG/M2 DAY 1 AND 2 IN FREIBURG; CYTARABINE 2X
     Route: 065
  6. THIOTEPA [Suspect]
     Active Substance: THIOTEPA
     Indication: Central nervous system lymphoma
     Dosage: DAY 2 IN FREIBURG
     Route: 065
  7. THIOTEPA [Suspect]
     Active Substance: THIOTEPA
     Dosage: DAY 4 IN MATRIX
     Route: 065
  8. IFOSFAMIDE [Suspect]
     Active Substance: IFOSFAMIDE
     Indication: Central nervous system lymphoma
     Dosage: DAY 3 AND 5 IN R-MTX/IFOSFAMIDE
     Route: 065

REACTIONS (3)
  - Infection [Fatal]
  - Haematotoxicity [Fatal]
  - Renal failure [Fatal]
